FAERS Safety Report 25448088 (Version 1)
Quarter: 2025Q2

REPORT INFORMATION
  Report Type: Spontaneous
  Country: GB (occurrence: GB)
  Receive Date: 20250617
  Receipt Date: 20250617
  Transmission Date: 20250716
  Serious: Yes (Other)
  Sender: ELI LILLY AND COMPANY
  Company Number: None

PATIENT
  Age: 22 Year

DRUGS (1)
  1. MOUNJARO [Suspect]
     Active Substance: TIRZEPATIDE
     Indication: Product used for unknown indication
     Dosage: 2.5 MG, WEEKLY (1/W)
     Route: 065

REACTIONS (9)
  - Starvation ketoacidosis [Unknown]
  - Blood potassium decreased [Unknown]
  - Metabolic acidosis [Unknown]
  - Oropharyngeal pain [Unknown]
  - Blood lactic acid increased [Unknown]
  - Mucosal irritation [Unknown]
  - Hyperchlorhydria [Unknown]
  - Vomiting [Unknown]
  - Nausea [Unknown]
